FAERS Safety Report 8662462 (Version 3)
Quarter: 2012Q4

REPORT INFORMATION
  Report Type: 
  Country: US (occurrence: US)
  Receive Date: 20120712
  Receipt Date: 20121214
  Transmission Date: 20130627
  Serious: No
  Sender: FDA-Public Use
  Company Number: US-PFIZER INC-2012166348

PATIENT
  Age: 39 Year
  Sex: Female
  Weight: 52.15 kg

DRUGS (3)
  1. NEURONTIN [Suspect]
     Dosage: 300 mg, 2x/day
     Route: 048
     Dates: start: 20120529
  2. DIAMOX [Suspect]
     Dosage: 250 mg, 2x/day (for 5 days prior to your menstrual period)
     Route: 048
     Dates: start: 20120529
  3. DIAMOX [Suspect]
     Dosage: 250 mg, as needed (2 days after your menstrual period each month)
     Route: 048
     Dates: start: 20120529

REACTIONS (2)
  - Somnolence [Unknown]
  - Myoclonus [Unknown]
